FAERS Safety Report 7056557-8 (Version None)
Quarter: 2010Q4

REPORT INFORMATION
  Report Type: 
  Country: None (occurrence: None)
  Receive Date: 20101018
  Receipt Date: 20101005
  Transmission Date: 20110411
  Serious: Yes (Hospitalization)
  Sender: FDA-Public Use
  Company Number: 011328

PATIENT
  Age: 53 Year
  Sex: Male

DRUGS (3)
  1. PLETAL [Suspect]
     Indication: HAEMORRHAGIC INFARCTION
     Dosage: 100 MG, BID, ORAL
     Route: 048
     Dates: start: 20100901, end: 20100921
  2. ASPIRIN [Suspect]
     Indication: THROMBOTIC CEREBRAL INFARCTION
     Dosage: ORAL
     Route: 048
     Dates: start: 20100908, end: 20100921
  3. SLONNON (ARGATROBAN) INJECTION [Concomitant]

REACTIONS (3)
  - APHASIA [None]
  - HAEMORRHAGIC INFARCTION [None]
  - VOMITING [None]
